FAERS Safety Report 24805854 (Version 1)
Quarter: 2025Q1

REPORT INFORMATION
  Report Type: Report from Study
  Country: KR (occurrence: KR)
  Receive Date: 20250103
  Receipt Date: 20250103
  Transmission Date: 20250408
  Serious: Yes (Other)
  Sender: TAKEDA
  Company Number: KR-TAKEDA-2025TUS000695

PATIENT
  Age: 23 Year
  Sex: Female
  Weight: 40.3 kg

DRUGS (18)
  1. VEDOLIZUMAB [Suspect]
     Active Substance: VEDOLIZUMAB
     Indication: Colitis ulcerative
  2. SOLONDO [Concomitant]
     Indication: Product used for unknown indication
     Dosage: 20 MILLIGRAM, BID
     Dates: start: 20240527, end: 20240602
  3. SOLONDO [Concomitant]
     Dosage: 15 MILLIGRAM, BID
     Dates: start: 20240603, end: 20240609
  4. SOLONDO [Concomitant]
     Dosage: 10 MILLIGRAM, BID
     Dates: start: 20240610, end: 20240616
  5. SOLONDO [Concomitant]
     Dosage: 5 MILLIGRAM, BID
     Dates: start: 20240617, end: 20240630
  6. SOLONDO [Concomitant]
     Dosage: 5 MILLIGRAM, QD
     Dates: start: 20240701, end: 20240714
  7. BECLOMETHASONE DIPROPIONATE [Concomitant]
     Active Substance: BECLOMETHASONE DIPROPIONATE
     Indication: Product used for unknown indication
     Dosage: 5 MILLIGRAM, QD
     Dates: start: 20240909, end: 20240929
  8. RABEKHAN [Concomitant]
     Indication: Peptic ulcer
     Dosage: 10 MILLIGRAM, BID
     Dates: start: 20240527, end: 20240616
  9. POLYBUTINE [Concomitant]
     Indication: Symptomatic treatment
     Dosage: 100 MILLIGRAM, TID
     Dates: start: 20240522, end: 20240616
  10. POLYBUTINE [Concomitant]
     Dosage: 100 MILLIGRAM, BID
     Dates: start: 20240617
  11. TIRAMIDE [Concomitant]
     Indication: Symptomatic treatment
     Dosage: 100 MILLIGRAM, TID
     Dates: start: 20240522, end: 20240616
  12. TIRAMIDE [Concomitant]
     Dosage: 100 MILLIGRAM, BID
     Dates: start: 20240617
  13. SUSPEN ER [Concomitant]
     Indication: Headache
     Dosage: 650 MILLIGRAM, TID
     Dates: start: 20240527, end: 20240609
  14. SUSPEN ER [Concomitant]
     Dosage: 650 MILLIGRAM, TID
     Dates: start: 20240617, end: 20240623
  15. Ketocin [Concomitant]
     Indication: Tension headache
     Dosage: UNK UNK, QD
     Dates: start: 20240807, end: 20240807
  16. MEDILAC DS [Concomitant]
     Indication: Symptomatic treatment
     Dosage: UNK UNK, QD
     Dates: start: 20230925, end: 20240521
  17. MEDILAC DS [Concomitant]
     Dosage: UNK, BID
     Dates: start: 20240522, end: 20240616
  18. MEDILAC DS [Concomitant]
     Dosage: UNK, BID
     Dates: start: 20240617

REACTIONS (1)
  - Clostridium difficile infection [Recovered/Resolved]

NARRATIVE: CASE EVENT DATE: 20240903
